FAERS Safety Report 7202719-6 (Version None)
Quarter: 2010Q4

REPORT INFORMATION
  Report Type: 
  Country: None (occurrence: None)
  Receive Date: 20101229
  Receipt Date: 20101221
  Transmission Date: 20110411
  Serious: Yes (Other)
  Sender: FDA-Public Use
  Company Number: US-MILLENNIUM PHARMACEUTICALS, INC.-2010-05859

PATIENT

DRUGS (5)
  1. VELCADE [Suspect]
     Indication: MULTIPLE MYELOMA
     Dosage: 1.3 MG/M2, CYCLIC
     Route: 042
  2. ELOTUZUMAB [Suspect]
     Indication: MULTIPLE MYELOMA
     Dosage: 2.5 MG/KG, CYCLIC
     Route: 042
  3. ELOTUZUMAB [Suspect]
     Dosage: 5 MG/KG, CYCLIC
     Route: 042
  4. ELOTUZUMAB [Suspect]
     Dosage: 10 MG/KG, CYCLIC
     Route: 042
  5. ELOTUZUMAB [Suspect]
     Dosage: 20 MG/KG, CYCLIC

REACTIONS (1)
  - CHEST PAIN [None]
